FAERS Safety Report 5485910-9 (Version None)
Quarter: 2007Q4

REPORT INFORMATION
  Report Type: 
  Country: None (occurrence: None)
  Receive Date: 20071015
  Receipt Date: 20070927
  Transmission Date: 20080405
  Serious: No
  Sender: FDA-Public Use
  Company Number: US-BOEHRINGER INGELHEIM PHARMACEUTICALS, INC.-2007-BP-19651BP

PATIENT
  Age: 93 Year
  Sex: Female

DRUGS (5)
  1. CATAPRES-TTS-1 [Suspect]
     Indication: HYPERTENSION
     Route: 061
     Dates: start: 20000101
  2. SYNTHROID [Concomitant]
  3. AMBIEN [Concomitant]
  4. HYDROCORTISONE [Concomitant]
  5. ANTIVERT [Concomitant]

REACTIONS (2)
  - APPLICATION SITE PRURITUS [None]
  - BLOOD PRESSURE INCREASED [None]
